FAERS Safety Report 6689113-1 (Version None)
Quarter: 2010Q2

REPORT INFORMATION
  Report Type: 
  Country: None (occurrence: None)
  Receive Date: 20100412
  Receipt Date: 20100105
  Transmission Date: 20101027
  Serious: No
  Sender: FDA-Public Use
  Company Number: 1000011125

PATIENT
  Age: 64 Year
  Sex: Female

DRUGS (6)
  1. BYSTOLIC [Suspect]
     Dosage: 2.5 MG (2.5 MG, 1 IN 1 D), ORAL
     Route: 048
     Dates: start: 20081101
  2. SIMVASTATIN [Concomitant]
  3. POTASSIUM [Concomitant]
  4. LISINOPRIL [Concomitant]
  5. LEVOTHYROXINE SODIUM [Concomitant]
  6. METFORMIN [Concomitant]

REACTIONS (2)
  - ALOPECIA [None]
  - TRICHORRHEXIS [None]
